FAERS Safety Report 5359382-9 (Version None)
Quarter: 2007Q2

REPORT INFORMATION
  Report Type: 
  Country: None (occurrence: None)
  Receive Date: 20070615
  Receipt Date: 20070605
  Transmission Date: 20071010
  Serious: Yes (Other)
  Sender: FDA-Public Use
  Company Number: DE-PFIZER INC-2007027424

PATIENT
  Sex: Female

DRUGS (1)
  1. LYRICA [Suspect]
     Route: 048
     Dates: start: 20061201, end: 20070301

REACTIONS (2)
  - IMPAIRED GASTRIC EMPTYING [None]
  - PLASMACYTOMA [None]
